FAERS Safety Report 16396789 (Version 1)
Quarter: 2019Q2

REPORT INFORMATION
  Report Type: Not Available
  Country: US (occurrence: US)
  Receive Date: 20190606
  Receipt Date: 20190606
  Transmission Date: 20190711
  Serious: No
  Sender: FDA-Public Use
  Company Number: US-NEUROCRINE BIOSCIENCES INC.-2019NBI01355

PATIENT
  Sex: Female

DRUGS (1)
  1. INGREZZA [Suspect]
     Active Substance: VALBENAZINE
     Indication: TARDIVE DYSKINESIA
     Route: 048
     Dates: start: 20170918

REACTIONS (6)
  - Energy increased [Unknown]
  - Apathy [Unknown]
  - Balance disorder [Unknown]
  - Decreased activity [Unknown]
  - Somnolence [Unknown]
  - Asthenia [Unknown]
